FAERS Safety Report 4397498-4 (Version None)
Quarter: 2004Q2

REPORT INFORMATION
  Report Type: 
  Country: None (occurrence: None)
  Receive Date: 20040621
  Receipt Date: 20031231
  Transmission Date: 20050107
  Serious: Yes (Other)
  Sender: FDA-Public Use
  Company Number: USA-2003-0012336

PATIENT
  Age: 21 Year
  Sex: Male

DRUGS (4)
  1. OXYCODONE HCL [Suspect]
     Dosage: UNK UNK, UNK; UNKNOWN
     Route: 065
  2. HYDROCODONE BITARTRATE [Suspect]
     Dosage: UNK UNK, UNK; UNKNOWN
     Route: 065
  3. XANAX [Suspect]
     Dosage: UNK UNK, UNK; UNKNOWN
     Route: 065
  4. METHADONE HCL [Suspect]
     Dosage: UNK UNK, UNK; UNKNOWN
     Route: 065

REACTIONS (1)
  - DRUG ABUSER [None]
